FAERS Safety Report 10716394 (Version 1)
Quarter: 2015Q1

REPORT INFORMATION
  Report Type: Spontaneous
  Country: US (occurrence: US)
  Receive Date: 20150116
  Receipt Date: 20150116
  Transmission Date: 20150721
  Serious: Yes (Death, Hospitalization)
  Sender: FDA-Public Use
  Company Number: US-BAYER-2015-006026

PATIENT

DRUGS (1)
  1. MIRENA [Suspect]
     Active Substance: LEVONORGESTREL
     Dosage: UNK
     Route: 064
     Dates: start: 200712, end: 20080512

REACTIONS (3)
  - Premature baby [Fatal]
  - Foetal exposure during pregnancy [None]
  - Low birth weight baby [Fatal]
